FAERS Safety Report 24837566 (Version 1)
Quarter: 2025Q1

REPORT INFORMATION
  Report Type: Spontaneous
  Country: GB (occurrence: GB)
  Receive Date: 20250113
  Receipt Date: 20250113
  Transmission Date: 20250408
  Serious: Yes (Other)
  Sender: TEVA
  Company Number: GB-MHRA-TPP18321157C11595724YC1735912047693

PATIENT
  Age: 80 Year
  Sex: Female
  Weight: 72 kg

DRUGS (15)
  1. TRIMETHOPRIM [Suspect]
     Active Substance: TRIMETHOPRIM
     Indication: Product used for unknown indication
     Dosage: TAKE ONE TWICE DAILY FOR 3 DAYS, TO TREAT URINE...
     Route: 065
     Dates: start: 20241203, end: 20241206
  2. QUININE SULFATE [Concomitant]
     Active Substance: QUININE SULFATE
     Indication: Muscle spasms
     Dosage: TAKE ONE AT BEDTIME FOR CRAMPS
     Route: 065
     Dates: start: 20240715
  3. MORPHINE SULFATE [Concomitant]
     Active Substance: MORPHINE SULFATE
     Indication: Product used for unknown indication
     Route: 065
     Dates: start: 20241126, end: 20241224
  4. OMEPRAZOLE [Concomitant]
     Active Substance: OMEPRAZOLE
     Indication: Product used for unknown indication
     Dosage: 1 DAILY
     Route: 065
     Dates: start: 20240715
  5. CARBOHYDRATES\FATTY ACIDS\MINERALS\PROTEIN\VITAMINS [Concomitant]
     Active Substance: CARBOHYDRATES\FATTY ACIDS\MINERALS\PROTEIN\VITAMINS
     Indication: Product used for unknown indication
     Dosage: TAKE ONE TWICE DAILY, FORTISIP EXTRA
     Route: 065
     Dates: start: 20241227
  6. LOSARTAN [Concomitant]
     Active Substance: LOSARTAN
     Indication: Product used for unknown indication
     Dosage: ONE TO BE TAKEN EACH DAY
     Route: 065
     Dates: start: 20240715
  7. ACETAMINOPHEN [Concomitant]
     Active Substance: ACETAMINOPHEN
     Indication: Product used for unknown indication
     Dosage: TWO TO BE TAKEN FOUR TIMES A DAY
     Route: 065
     Dates: start: 20240715
  8. TRAMADOL [Concomitant]
     Active Substance: TRAMADOL
     Indication: Product used for unknown indication
     Dosage: TAKE ONE FOUR TIMES A DAY. INCREASE SLOWLY TO A...
     Route: 065
     Dates: start: 20241205
  9. DOCUSATE SODIUM [Concomitant]
     Active Substance: DOCUSATE SODIUM
     Indication: Product used for unknown indication
     Dosage: TAKE ONE TWICE DAILY ADJUST ACCORDING TO RESPONSE
     Route: 065
     Dates: start: 20240715
  10. EZETIMIBE [Concomitant]
     Active Substance: EZETIMIBE
     Indication: Product used for unknown indication
     Dosage: TAKE ONE DAILY
     Route: 065
     Dates: start: 20240715
  11. BECLOMETHASONE DIPROPIONATE\FORMOTEROL FUMARATE\GLYCOPYRROLATE [Concomitant]
     Active Substance: BECLOMETHASONE DIPROPIONATE\FORMOTEROL FUMARATE\GLYCOPYRROLATE
     Indication: Product used for unknown indication
     Dosage: INHALE TWO PUFFS TWICE DAILY (PLEASE RETURN YOU...
     Route: 055
     Dates: start: 20240715
  12. DICLOFENAC DIETHYLAMINE [Concomitant]
     Active Substance: DICLOFENAC DIETHYLAMINE
     Indication: Product used for unknown indication
     Dosage: APPLY TWICE DAILY
     Route: 065
     Dates: start: 20240715
  13. CALCIUM CARBONATE [Concomitant]
     Active Substance: CALCIUM CARBONATE
     Indication: Product used for unknown indication
     Dosage: ONE TO BE TAKEN TWICE A DAY
     Route: 065
     Dates: start: 20240715
  14. MST [Concomitant]
     Indication: Product used for unknown indication
     Dosage: TAKE ONE EVERY 12 HRS
     Route: 065
     Dates: start: 20240715, end: 20241205
  15. PREGABALIN [Concomitant]
     Active Substance: PREGABALIN
     Indication: Product used for unknown indication
     Dosage: TAKE ONE TWICE DAILY
     Route: 065
     Dates: start: 20240719

REACTIONS (1)
  - Rash erythematous [Recovered/Resolved]
